FAERS Safety Report 7332632-5 (Version None)
Quarter: 2011Q1

REPORT INFORMATION
  Report Type: 
  Country: None (occurrence: None)
  Receive Date: 20110304
  Receipt Date: 20110224
  Transmission Date: 20110831
  Serious: Yes (Hospitalization, Other)
  Sender: FDA-Public Use
  Company Number: US-ELI_LILLY_AND_COMPANY-US201103000609

PATIENT
  Sex: Male
  Weight: 142.86 kg

DRUGS (6)
  1. GLIPIZIDE [Concomitant]
     Dosage: UNK, 2/D
  2. METFORMIN [Concomitant]
     Dosage: 1000 MG, 2/D
  3. BYETTA [Suspect]
     Dosage: 10 UG, 2/D
     Route: 058
  4. BYETTA [Suspect]
     Indication: TYPE 2 DIABETES MELLITUS
     Dosage: 5 UG, 2/D
     Route: 058
  5. BYETTA [Suspect]
     Dosage: 10 UG, 2/D
     Route: 058
  6. WELLBUTRIN [Concomitant]

REACTIONS (4)
  - BLOOD GLUCOSE INCREASED [None]
  - WEIGHT DECREASED [None]
  - DEPRESSION SUICIDAL [None]
  - STRESS [None]
